FAERS Safety Report 13363431 (Version 1)
Quarter: 2017Q1

REPORT INFORMATION
  Report Type: Spontaneous
  Country: RO (occurrence: RO)
  Receive Date: 20170323
  Receipt Date: 20170323
  Transmission Date: 20170429
  Serious: Yes (Other)
  Sender: FDA-Public Use
  Company Number: RO-PFIZER INC-2017121335

PATIENT
  Age: 75 Year
  Sex: Female
  Weight: 60 kg

DRUGS (5)
  1. ENAP [Concomitant]
     Active Substance: ENALAPRIL
     Dosage: 10 MG, 1X/DAY, MIDDAY
  2. SIOFOR [Concomitant]
     Active Substance: METFORMIN HYDROCHLORIDE
     Dosage: 500 MG, 2X/DAY, MORNING AND MIDDAY
  3. SUTENT [Suspect]
     Active Substance: SUNITINIB MALATE
     Dosage: 50 MG, 1X/DAY, MIDDAY
     Dates: end: 20170306
  4. INSULINA [Concomitant]
     Active Substance: INSULIN NOS
     Dosage: UNK, 2X/DAY (MORNING AND EVENING)
  5. METOPROLOL. [Concomitant]
     Active Substance: METOPROLOL
     Dosage: 100 MG, 2X/DAY, MORNING AND EVENING

REACTIONS (4)
  - Blood glucose decreased [Recovered/Resolved]
  - Blood glucose fluctuation [Recovered/Resolved]
  - Condition aggravated [Recovered/Resolved]
  - Hypertension [Recovered/Resolved]

NARRATIVE: CASE EVENT DATE: 20170307
